FAERS Safety Report 23151600 (Version 1)
Quarter: 2023Q4

REPORT INFORMATION
  Report Type: Report from Study
  Country: US (occurrence: US)
  Receive Date: 20231107
  Receipt Date: 20231107
  Transmission Date: 20240110
  Serious: Yes (Hospitalization)
  Sender: FDA-Public Use
  Company Number: US-ABBVIE-5479475

PATIENT
  Sex: Female

DRUGS (1)
  1. VENCLEXTA [Suspect]
     Active Substance: VENETOCLAX
     Indication: Chronic lymphocytic leukaemia recurrent
     Dosage: FORM STRENGTH WAS 100 MILLIGRAM.?TAKE TWO TABLETS BY MOUTH ONCE DAILY WITH FOOD AND A FULL GLASS ...
     Route: 048

REACTIONS (1)
  - Pneumonitis [Unknown]
